FAERS Safety Report 10221067 (Version 1)
Quarter: 2014Q2

REPORT INFORMATION
  Report Type: Spontaneous
  Country: US (occurrence: None)
  Receive Date: 20140604
  Receipt Date: 20140604
  Transmission Date: 20141212
  Serious: Yes (Other)
  Sender: FDA-Public Use
  Company Number: 2014-US-006599

PATIENT
  Age: 58 Year
  Sex: Male

DRUGS (1)
  1. PRIATT (ZICONOTIDE) INTRATHECAL INFUSION [Suspect]
     Indication: PAIN
     Dosage: UNK UG
     Route: 037
     Dates: end: 201310

REACTIONS (6)
  - Weight decreased [None]
  - Rectal spasm [None]
  - Hallucination [None]
  - Burning sensation [None]
  - Gastrointestinal disorder [None]
  - Constipation [None]
